FAERS Safety Report 5934407-8 (Version None)
Quarter: 2008Q4

REPORT INFORMATION
  Report Type: 
  Country: None (occurrence: None)
  Receive Date: 20081027
  Receipt Date: 20081015
  Transmission Date: 20090506
  Serious: Yes (Hospitalization, Other)
  Sender: FDA-Public Use
  Company Number: 2008AL011325

PATIENT
  Age: 59 Year
  Sex: Female

DRUGS (2)
  1. TRAMADOL HCL [Suspect]
     Indication: OSTEOARTHRITIS
     Dosage: 100 MG; TID; PO
     Route: 048
     Dates: start: 20080929, end: 20081002
  2. AMITRIPTYLINE HCL [Concomitant]

REACTIONS (1)
  - DERMATITIS EXFOLIATIVE [None]
